FAERS Safety Report 17206482 (Version 2)
Quarter: 2022Q2

REPORT INFORMATION
  Report Type: Report from Study
  Country: US (occurrence: US)
  Receive Date: 20191227
  Receipt Date: 20220513
  Transmission Date: 20220721
  Serious: Yes (Other)
  Sender: FDA-Public Use
  Company Number: US-TEVA-2019-US-1160223

PATIENT
  Age: 54 Year
  Sex: Male

DRUGS (4)
  1. CLOZAPINE [Suspect]
     Active Substance: CLOZAPINE
     Indication: Product used for unknown indication
     Dosage: 200 MILLIGRAM DAILY;
     Route: 065
  2. LITHIUM [Concomitant]
     Active Substance: LITHIUM
  3. TEGRETOL [Concomitant]
     Active Substance: CARBAMAZEPINE
  4. TRILEPTAL [Concomitant]
     Active Substance: OXCARBAZEPINE

REACTIONS (2)
  - Thrombosis [Unknown]
  - Neutrophil count decreased [Unknown]
